FAERS Safety Report 5968909-5 (Version None)
Quarter: 2008Q4

REPORT INFORMATION
  Report Type: 
  Country: None (occurrence: None)
  Receive Date: 20081126
  Receipt Date: 20081119
  Transmission Date: 20090506
  Serious: Yes (Other)
  Sender: FDA-Public Use
  Company Number: US-ELI_LILLY_AND_COMPANY-US200810007707

PATIENT
  Sex: Female
  Weight: 73.016 kg

DRUGS (5)
  1. BYETTA [Suspect]
     Indication: TYPE 2 DIABETES MELLITUS
     Dosage: 5 UG, UNK
     Route: 058
     Dates: start: 20070417, end: 20081024
  2. LIPITOR [Concomitant]
     Dosage: 40 MG, DAILY (1/D)
  3. LISINOPRIL [Concomitant]
     Dosage: 10 MG, DAILY (1/D)
  4. ZYRTEC [Concomitant]
     Dosage: 10 MG, DAILY (1/D)
  5. GLUCOPHAGE [Concomitant]
     Dosage: 1000 MG, 2/D

REACTIONS (2)
  - PANCREATITIS [None]
  - WEIGHT DECREASED [None]
